FAERS Safety Report 8983305 (Version 4)
Quarter: 2013Q2

REPORT INFORMATION
  Report Type: Spontaneous
  Country: GB (occurrence: GB)
  Receive Date: 20121221
  Receipt Date: 20130516
  Transmission Date: 20140414
  Serious: Yes (Other)
  Sender: FDA-Public Use
  Company Number: GB-ALLERGAN-1217381US

PATIENT
  Age: 71 Year
  Sex: Male
  Weight: 70 kg

DRUGS (3)
  1. ALPHAGAN? 0.2% W/V (2 MG/ML) EYE DROPS SOLUTION [Suspect]
     Indication: INTRAOCULAR PRESSURE TEST
     Dosage: 1 DROP PER EYE, TWICE DAILY
     Route: 047
     Dates: start: 20110303, end: 20130213
  2. ALPHAGAN? 0.2% W/V (2 MG/ML) EYE DROPS SOLUTION [Suspect]
     Indication: GLAUCOMA
     Dosage: 1 DROP PER EYE, TWICE DAILY
     Route: 047
     Dates: start: 20121220
  3. IBUPROFEN [Concomitant]
     Indication: ARTHRITIS
     Dosage: 400 MG AS PRESCRIBED

REACTIONS (4)
  - Hallucination [Recovered/Resolved]
  - Disorientation [Unknown]
  - Dizziness [Recovered/Resolved]
  - Dizziness [Unknown]
